FAERS Safety Report 13897664 (Version 1)
Quarter: 2017Q3

REPORT INFORMATION
  Report Type: Spontaneous
  Country: CN (occurrence: CN)
  Receive Date: 20170823
  Receipt Date: 20170823
  Transmission Date: 20171127
  Serious: Yes (Other)
  Sender: FDA-Public Use
  Company Number: CN-JNJFOC-20170815487

PATIENT
  Age: 70 Year
  Sex: Male

DRUGS (1)
  1. ULTRACET [Suspect]
     Active Substance: ACETAMINOPHEN\TRAMADOL HYDROCHLORIDE
     Indication: PAIN
     Dosage: ONE TABLET IN THE MORNING AND ONE TABLET IN THE AFTERNOON
     Route: 048
     Dates: start: 2006

REACTIONS (5)
  - Drug dependence [Unknown]
  - Hyperhidrosis [Unknown]
  - Tremor [Unknown]
  - Myocardial infarction [Unknown]
  - Withdrawal syndrome [Unknown]

NARRATIVE: CASE EVENT DATE: 2010
